FAERS Safety Report 4482444-5 (Version None)
Quarter: 2004Q4

REPORT INFORMATION
  Report Type: 
  Country: None (occurrence: None)
  Receive Date: 20041022
  Receipt Date: 20041008
  Transmission Date: 20050328
  Serious: No
  Sender: FDA-Public Use
  Company Number: BR-MERCK-0410BRA00361M

PATIENT
  Age: 33 Year
  Sex: Female

DRUGS (3)
  1. VIOXX [Suspect]
     Indication: MUSCLE SPASMS
     Route: 048
     Dates: start: 20040201, end: 20040301
  2. ETILEFRINE HYDROCHLORIDE [Concomitant]
     Indication: PROPHYLAXIS
     Route: 065
  3. VIOXX [Suspect]
     Indication: ABDOMINAL PAIN
     Route: 048
     Dates: start: 20040201, end: 20040301

REACTIONS (2)
  - DRUG EXPOSURE DURING PREGNANCY [None]
  - HYPERTENSION [None]
